FAERS Safety Report 13780787 (Version 4)
Quarter: 2019Q3

REPORT INFORMATION
  Report Type: Spontaneous
  Country: US (occurrence: US)
  Receive Date: 20170724
  Receipt Date: 20190808
  Transmission Date: 20191004
  Serious: No
  Sender: FDA-Public Use
  Company Number: US-PFIZER INC-2017316066

PATIENT
  Age: 78 Year
  Sex: Female
  Weight: 90.7 kg

DRUGS (6)
  1. MINIVELLE [Concomitant]
     Active Substance: ESTRADIOL
     Indication: BLOOD OESTROGEN ABNORMAL
     Dosage: 0.005 PATCH APPLIED TWICE A WEEK TO BUTTOCKS
  2. LYRICA [Suspect]
     Active Substance: PREGABALIN
     Indication: NEUROPATHY PERIPHERAL
     Dosage: 50 MG, ONCE EVERY EVENING
     Route: 048
  3. THYROXINE [Concomitant]
     Active Substance: LEVOTHYROXINE
     Indication: THYROID DISORDER
     Dosage: 75 MG, 2X/DAY
     Route: 048
  4. LYRICA [Suspect]
     Active Substance: PREGABALIN
     Indication: FIBROMYALGIA
     Dosage: 150 MG, UNK
     Route: 048
     Dates: start: 2015
  5. LYRICA [Suspect]
     Active Substance: PREGABALIN
     Indication: NECK PAIN
  6. AMITIZA [Concomitant]
     Active Substance: LUBIPROSTONE
     Indication: CONSTIPATION
     Dosage: UNK

REACTIONS (8)
  - Fatigue [Unknown]
  - Sedation [Unknown]
  - Musculoskeletal chest pain [Unknown]
  - Disease recurrence [Not Recovered/Not Resolved]
  - Malaise [Unknown]
  - Asthenia [Unknown]
  - Herpes zoster [Not Recovered/Not Resolved]
  - Arthritis [Unknown]

NARRATIVE: CASE EVENT DATE: 2015
